FAERS Safety Report 18652518 (Version 1)
Quarter: 2020Q4

REPORT INFORMATION
  Report Type: Spontaneous
  Country: US (occurrence: US)
  Receive Date: 20201222
  Receipt Date: 20201222
  Transmission Date: 20210114
  Serious: Yes (Other)
  Sender: FDA-Public Use
  Company Number: US-TOLMAR, INC.-20US024433

PATIENT

DRUGS (1)
  1. AZELAIC ACID. [Suspect]
     Active Substance: AZELAIC ACID
     Indication: ROSACEA
     Dosage: UNK
     Route: 065
     Dates: start: 202009

REACTIONS (4)
  - Discomfort [Unknown]
  - Cellulitis [Recovering/Resolving]
  - Pain [Unknown]
  - Application site pain [Unknown]
